FAERS Safety Report 16098587 (Version 3)
Quarter: 2020Q2

REPORT INFORMATION
  Report Type: Report from Study
  Country: US (occurrence: US)
  Receive Date: 20190321
  Receipt Date: 20200514
  Transmission Date: 20200713
  Serious: Yes (Other)
  Sender: FDA-Public Use
  Company Number: PHEH2019US011833

PATIENT
  Age: 41 Year
  Sex: Female

DRUGS (1)
  1. GILENYA [Suspect]
     Active Substance: FINGOLIMOD HYDROCHLORIDE
     Indication: MULTIPLE SCLEROSIS
     Dosage: 0.5 MG, QD
     Route: 048
     Dates: start: 20180814

REACTIONS (9)
  - Rhinorrhoea [Recovering/Resolving]
  - Influenza like illness [Unknown]
  - Pain [Unknown]
  - Cough [Recovering/Resolving]
  - Ageusia [Unknown]
  - Anosmia [Unknown]
  - Arthralgia [Not Recovered/Not Resolved]
  - COVID-19 [Recovering/Resolving]
  - Dyspnoea [Unknown]

NARRATIVE: CASE EVENT DATE: 20190307
